FAERS Safety Report 8699321 (Version 2)
Quarter: 2012Q4

REPORT INFORMATION
  Report Type: 
  Country: ES (occurrence: ES)
  Receive Date: 20120802
  Receipt Date: 20120829
  Transmission Date: 20130627
  Serious: Yes (Hospitalization)
  Sender: FDA-Public Use
  Company Number: ES-ELI_LILLY_AND_COMPANY-ES201207008389

PATIENT
  Age: 66 Year
  Sex: Female
  Weight: 89 kg

DRUGS (6)
  1. FORSTEO [Suspect]
     Indication: OSTEOPOROSIS
     Dosage: 20 ug, qd
     Route: 058
     Dates: start: 20120521
  2. LEVOTHYROXINE [Concomitant]
     Indication: THYROID DISORDER
     Dosage: UNK
     Route: 048
  3. ALDACTONE [Concomitant]
     Indication: DIURETIC THERAPY
     Dosage: 100 DF, UNK
     Route: 048
  4. IMUREL [Concomitant]
     Indication: RHEUMATOID ARTHRITIS
     Dosage: 50 DF, qd
     Route: 048
  5. PANTOPRAZOLE [Concomitant]
     Dosage: 40 mg, qd
     Route: 048
  6. LORAZEPAM [Concomitant]
     Indication: SLEEP DISORDER
     Dosage: 2 mg, tid
     Route: 048

REACTIONS (2)
  - General physical condition abnormal [Recovered/Resolved]
  - Injection site erythema [Recovered/Resolved]
